FAERS Safety Report 22664509 (Version 4)
Quarter: 2024Q1

REPORT INFORMATION
  Report Type: Spontaneous
  Country: US (occurrence: US)
  Receive Date: 20230703
  Receipt Date: 20240109
  Transmission Date: 20240410
  Serious: No
  Sender: FDA-Public Use
  Company Number: US-BRISTOL-MYERS SQUIBB COMPANY-2023-092352

PATIENT
  Age: 51 Year
  Sex: Male
  Weight: 151 kg

DRUGS (6)
  1. POMALYST [Suspect]
     Active Substance: POMALIDOMIDE
     Indication: Plasma cell myeloma
     Route: 048
     Dates: start: 20220124
  2. POMALYST [Suspect]
     Active Substance: POMALIDOMIDE
     Dosage: DAILY ON DAYS 1-14 OF 28 DAY CYCLE
     Route: 048
     Dates: start: 20210127
  3. POMALYST [Suspect]
     Active Substance: POMALIDOMIDE
     Dosage: DAILY ON DAYS 1-14 OF 28 DAY CYCLE
     Route: 048
     Dates: start: 20210929
  4. DARZALEX [Concomitant]
     Active Substance: DARATUMUMAB
     Indication: Product used for unknown indication
     Route: 042
  5. DEXAMETHASONE [Concomitant]
     Active Substance: DEXAMETHASONE
     Indication: Product used for unknown indication
     Route: 048
  6. ELIQUIS [Concomitant]
     Active Substance: APIXABAN
     Indication: Product used for unknown indication
     Route: 048

REACTIONS (5)
  - Tooth infection [Recovering/Resolving]
  - Off label use [Unknown]
  - COVID-19 [Recovered/Resolved]
  - Muscle spasms [Not Recovered/Not Resolved]
  - Oedema [Unknown]

NARRATIVE: CASE EVENT DATE: 20220124
